FAERS Safety Report 25220722 (Version 1)
Quarter: 2025Q2

REPORT INFORMATION
  Report Type: Report from Study
  Country: US (occurrence: US)
  Receive Date: 20250421
  Receipt Date: 20250421
  Transmission Date: 20250716
  Serious: Yes (Death)
  Sender: PFIZER
  Company Number: US-PFIZER INC-PV202500046607

PATIENT
  Age: 67 Year
  Sex: Female

DRUGS (3)
  1. IBRANCE [Suspect]
     Active Substance: PALBOCICLIB
     Indication: Breast cancer
     Dosage: 125 MG, DAILY
     Route: 048
  2. ITOVEBI [Concomitant]
     Active Substance: INAVOLISIB
  3. KISQALI [Concomitant]
     Active Substance: RIBOCICLIB SUCCINATE
     Dosage: 400 MG, DAILY

REACTIONS (1)
  - Death [Fatal]
